FAERS Safety Report 6458769-0 (Version None)
Quarter: 2009Q4

REPORT INFORMATION
  Report Type: 
  Country: None (occurrence: None)
  Receive Date: 20091127
  Receipt Date: 20091116
  Transmission Date: 20100525
  Serious: Yes (Life-Threatening, Hospitalization)
  Sender: FDA-Public Use
  Company Number: 12359907

PATIENT
  Age: 59 Year
  Sex: Female
  Weight: 80 kg

DRUGS (9)
  1. METFORMIN HCL [Suspect]
     Indication: DIABETES MELLITUS
     Route: 048
  2. ORLISTAT [Interacting]
     Indication: OBESITY
     Route: 048
     Dates: start: 19990622, end: 19990914
  3. TAGAMET [Interacting]
     Indication: ABDOMINAL PAIN
     Route: 048
     Dates: start: 19990814
  4. TAGAMET [Interacting]
     Indication: OBESITY
     Route: 048
     Dates: start: 19990814
  5. ASPIRIN [Concomitant]
     Indication: MYOCARDIAL ISCHAEMIA
     Route: 048
     Dates: start: 19940101
  6. ASPIRIN [Concomitant]
     Indication: OBESITY
     Route: 048
     Dates: start: 19940101
  7. CO-AMILOFRUSE [Concomitant]
     Indication: OEDEMA
     Route: 048
     Dates: start: 19940101
  8. CO-AMILOFRUSE [Concomitant]
     Indication: OBESITY
     Route: 048
     Dates: start: 19940101
  9. SODIUM BICARBONATE IN PLASTIC CONTAINER [Concomitant]

REACTIONS (3)
  - DRUG INTERACTION [None]
  - LACTIC ACIDOSIS [None]
  - RENAL FAILURE ACUTE [None]
